FAERS Safety Report 13179913 (Version 2)
Quarter: 2017Q1

REPORT INFORMATION
  Report Type: Spontaneous
  Country: JP (occurrence: JP)
  Receive Date: 20170202
  Receipt Date: 20170328
  Transmission Date: 20170428
  Serious: Yes (Hospitalization, Other)
  Sender: FDA-Public Use
  Company Number: JP-GLAXOSMITHKLINE-JP2016196412

PATIENT
  Age: 76 Year
  Sex: Female
  Weight: 52 kg

DRUGS (5)
  1. PREDNISOLONE. [Suspect]
     Active Substance: PREDNISOLONE
     Dosage: 3 MG, 1D
     Route: 048
  2. MEROPENEM. [Suspect]
     Active Substance: MEROPENEM
     Dosage: 1.5 G, 1D
     Route: 041
     Dates: start: 201206, end: 201206
  3. FLUTIDE [Suspect]
     Active Substance: FLUTICASONE PROPIONATE
     Indication: ASTHMA
     Dosage: 400 ?G, 1D
     Route: 055
  4. PREDNISOLONE. [Suspect]
     Active Substance: PREDNISOLONE
     Dosage: 2 MG, 1D
     Route: 048
  5. PREDNISOLONE. [Suspect]
     Active Substance: PREDNISOLONE
     Indication: ASTHMA
     Dosage: 5 MG, 1D
     Route: 048

REACTIONS (10)
  - Tuberculosis [Recovered/Resolved]
  - Pruritus [Recovering/Resolving]
  - Colon cancer stage I [Unknown]
  - Rash [Recovering/Resolving]
  - Asthma [Recovered/Resolved]
  - Sputum purulent [Recovered/Resolved]
  - Pyrexia [Recovering/Resolving]
  - Cough [Recovered/Resolved]
  - Pulmonary tuberculosis [Recovering/Resolving]
  - Pleural effusion [Recovered/Resolved]

NARRATIVE: CASE EVENT DATE: 2006
